FAERS Safety Report 4288560-5 (Version None)
Quarter: 2004Q1

REPORT INFORMATION
  Report Type: 
  Country: None (occurrence: None)
  Receive Date: 20040205
  Receipt Date: 20040129
  Transmission Date: 20041129
  Serious: Yes (Hospitalization)
  Sender: FDA-Public Use
  Company Number: 2004CG00195

PATIENT
  Age: 45 Year
  Sex: Female

DRUGS (5)
  1. NAROPIN [Suspect]
     Indication: EPIDURAL ANAESTHESIA
     Dates: start: 20020925
  2. NAROPIN [Suspect]
     Indication: POSTOPERATIVE ANALGESIA
     Dates: start: 20020925
  3. ANAESTHETICS [Concomitant]
  4. ACUPAN [Concomitant]
  5. PROFENID [Concomitant]

REACTIONS (4)
  - ANAESTHETIC COMPLICATION [None]
  - CAUDA EQUINA SYNDROME [None]
  - JOINT ANKYLOSIS [None]
  - WALKING AID USER [None]
